FAERS Safety Report 8823570 (Version 1)
Quarter: 2012Q4

REPORT INFORMATION
  Report Type: 
  Country: US (occurrence: US)
  Receive Date: 20121003
  Receipt Date: 20121003
  Transmission Date: 20130627
  Serious: Yes (Hospitalization, Other)
  Sender: FDA-Public Use
  Company Number: US-009507513-1103USA00962

PATIENT

DRUGS (1)
  1. FOSAMAX [Suspect]
     Indication: OSTEOPOROSIS
     Dosage: 70 mg, UNK
     Route: 048
     Dates: start: 20000111, end: 20090201

REACTIONS (5)
  - Femur fracture [Unknown]
  - Intramedullary rod insertion [Unknown]
  - Fracture [Unknown]
  - Rib fracture [Unknown]
  - Fall [Unknown]
